FAERS Safety Report 23210606 (Version 3)
Quarter: 2023Q4

REPORT INFORMATION
  Report Type: Other
  Country: US (occurrence: None)
  Receive Date: 20231121
  Receipt Date: 20231212
  Transmission Date: 20240110
  Serious: Yes (Death, Other)
  Sender: FDA-Public Use
  Company Number: US-ROCHE-3458940

PATIENT
  Age: 63 Year
  Sex: Male
  Weight: 113.5 kg

DRUGS (8)
  1. OCREVUS [Suspect]
     Active Substance: OCRELIZUMAB
     Indication: Relapsing multiple sclerosis
     Dosage: DATE OF INFUSION: 17/SEP/2020, 20/SEP/2021 LAST DOSE ON 17/SEP/2023
     Route: 042
     Dates: start: 20190809
  2. SOLU-MEDROL [Concomitant]
     Active Substance: METHYLPREDNISOLONE SODIUM SUCCINATE
     Route: 042
  3. PEPCID [Concomitant]
     Active Substance: FAMOTIDINE
     Route: 048
  4. CLARITIN [Concomitant]
     Active Substance: LORATADINE
     Route: 048
  5. TYLENOL [Concomitant]
     Active Substance: ACETAMINOPHEN
     Route: 048
  6. PROVIGIL [Concomitant]
     Active Substance: MODAFINIL
  7. LOSARTAN [Concomitant]
     Active Substance: LOSARTAN
  8. EFFEXOR [Concomitant]
     Active Substance: VENLAFAXINE HYDROCHLORIDE

REACTIONS (6)
  - Death [Fatal]
  - Abdominal pain upper [Unknown]
  - Somnolence [Unknown]
  - Nausea [Unknown]
  - Anal incontinence [Unknown]
  - Respiratory arrest [Unknown]

NARRATIVE: CASE EVENT DATE: 20230917
